FAERS Safety Report 25078926 (Version 1)
Quarter: 2025Q1

REPORT INFORMATION
  Report Type: Spontaneous
  Country: FR (occurrence: FR)
  Receive Date: 20250314
  Receipt Date: 20250314
  Transmission Date: 20250408
  Serious: Yes (Congenital Anomaly)
  Sender: ELI LILLY AND COMPANY
  Company Number: None

PATIENT
  Sex: Female

DRUGS (2)
  1. FLUOXETINE HYDROCHLORIDE [Suspect]
     Active Substance: FLUOXETINE HYDROCHLORIDE
     Indication: Generalised anxiety disorder
     Dosage: 40 MG, DAILY
     Route: 064
     Dates: start: 20240324, end: 20240501
  2. FLUOXETINE HYDROCHLORIDE [Suspect]
     Active Substance: FLUOXETINE HYDROCHLORIDE
     Indication: Generalised anxiety disorder
     Dosage: 40 MG, DAILY
     Route: 064
     Dates: start: 20240324, end: 20240501

REACTIONS (2)
  - Trisomy 21 [Recovered/Resolved]
  - Maternal exposure during pregnancy [Recovered/Resolved]
